FAERS Safety Report 4344352-X (Version None)
Quarter: 2004Q2

REPORT INFORMATION
  Report Type: 
  Country: None (occurrence: None)
  Receive Date: 20040420
  Receipt Date: 20040409
  Transmission Date: 20050107
  Serious: Yes (Hospitalization)
  Sender: FDA-Public Use
  Company Number: 2004209014GB

PATIENT

DRUGS (7)
  1. CLINDAMYCIN [Suspect]
     Dosage: 1.2 G, DAILY, IV
     Route: 042
  2. CIPROXIN [Concomitant]
  3. BENZYLPENICILLIN (BENZYLPENICILLIN) [Concomitant]
  4. SLAGYL [Concomitant]
  5. FLUCLOXACILLIN [Concomitant]
  6. NORADRENALINE (NOREPINEPHRINE) [Concomitant]
  7. DOBUTAMINE [Concomitant]

REACTIONS (7)
  - COUGH [None]
  - CYANOSIS [None]
  - DYSPNOEA [None]
  - HYPOTENSION [None]
  - LEFT VENTRICULAR FAILURE [None]
  - PCO2 DECREASED [None]
  - PO2 DECREASED [None]
